FAERS Safety Report 23020583 (Version 1)
Quarter: 2023Q4

REPORT INFORMATION
  Report Type: Spontaneous
  Country: CN (occurrence: None)
  Receive Date: 20231003
  Receipt Date: 20231003
  Transmission Date: 20240110
  Serious: Yes (Other)
  Sender: FDA-Public Use
  Company Number: 2023A223085

PATIENT
  Age: 13149 Day
  Sex: Female

DRUGS (3)
  1. FULVESTRANT [Suspect]
     Active Substance: FULVESTRANT
     Indication: Chemotherapy
     Route: 030
     Dates: start: 20230130, end: 20230130
  2. ABEMACICLIB [Suspect]
     Active Substance: ABEMACICLIB
     Indication: Chemotherapy
     Route: 048
     Dates: start: 20230130, end: 20230214
  3. LEUPROLIDE ACETATE [Suspect]
     Active Substance: LEUPROLIDE ACETATE
     Indication: Chemotherapy
     Route: 058
     Dates: start: 20230130, end: 20230130

REACTIONS (1)
  - Myelosuppression [Unknown]

NARRATIVE: CASE EVENT DATE: 20230214
